FAERS Safety Report 5536059-8 (Version None)
Quarter: 2007Q4

REPORT INFORMATION
  Report Type: 
  Country: None (occurrence: None)
  Receive Date: 20071204
  Receipt Date: 20071121
  Transmission Date: 20080405
  Serious: Yes (Disabling)
  Sender: FDA-Public Use
  Company Number: OSCN-PR-0704S-0188

PATIENT
  Age: 72 Year
  Sex: Male

DRUGS (5)
  1. OMNISCAN [Suspect]
     Indication: BRAIN DAMAGE
     Dosage: 42 ML, SINGLE DOSE, I.V., 22 ML, SINGLE DOSE, I.V.
     Route: 042
     Dates: start: 20060425, end: 20060426
  2. OMNISCAN [Suspect]
     Indication: PNEUMONIA
     Dosage: 42 ML, SINGLE DOSE, I.V., 22 ML, SINGLE DOSE, I.V.
     Route: 042
     Dates: start: 20060425, end: 20060426
  3. OMNISCAN [Suspect]
     Indication: BRAIN DAMAGE
     Dosage: 42 ML, SINGLE DOSE, I.V., 22 ML, SINGLE DOSE, I.V.
     Route: 042
     Dates: start: 20060429, end: 20060429
  4. OMNISCAN [Suspect]
     Indication: PNEUMONIA
     Dosage: 42 ML, SINGLE DOSE, I.V., 22 ML, SINGLE DOSE, I.V.
     Route: 042
     Dates: start: 20060429, end: 20060429
  5. EPOGEN [Concomitant]

REACTIONS (2)
  - NEPHROGENIC SYSTEMIC FIBROSIS [None]
  - PNEUMONIA [None]
